FAERS Safety Report 8602088-0 (Version None)
Quarter: 2012Q3

REPORT INFORMATION
  Report Type: 
  Country: None (occurrence: None)
  Receive Date: 20120817
  Receipt Date: 20120814
  Transmission Date: 20120928
  Serious: Yes (Other)
  Sender: FDA-Public Use
  Company Number: DE-PFIZER INC-2012199219

PATIENT
  Sex: Female

DRUGS (2)
  1. ZOLOFT [Suspect]
     Dosage: 25 MG, ALTERNATE DAY
  2. ZOLOFT [Suspect]
     Dosage: 25 MG, 2X/DAY
     Dates: start: 20020101

REACTIONS (3)
  - DEPRESSION [None]
  - COMPULSIONS [None]
  - DRUG INEFFECTIVE [None]
